FAERS Safety Report 6761164-8 (Version None)
Quarter: 2010Q2

REPORT INFORMATION
  Report Type: 
  Country: None (occurrence: None)
  Receive Date: 20100604
  Receipt Date: 20100524
  Transmission Date: 20101027
  Serious: Yes (Hospitalization)
  Sender: FDA-Public Use
  Company Number: DSA_43188_2010

PATIENT
  Sex: Male

DRUGS (8)
  1. CARDIZEM [Suspect]
     Indication: TACHYCARDIA
     Dosage: (180 MG QD ORAL)
     Route: 048
  2. BIOTENE TOOTHPASTE [Suspect]
     Indication: DENTAL CARE
     Dosage: (DF DENTAL)
     Route: 004
     Dates: start: 20090101
  3. BIOTENE MOUTHWASH [Suspect]
     Indication: DRY MOUTH
     Dosage: (DF), (DF DENTAL)
     Route: 004
     Dates: start: 20090101
  4. COUMADIN [Suspect]
     Indication: ANTICOAGULANT THERAPY
     Dosage: (DF DOSE: DAILY ORAL)
     Route: 048
  5. LOTENSIN [Suspect]
     Indication: BLOOD PRESSURE ABNORMAL
     Dosage: (20 MG QD ORAL)
     Route: 048
  6. NEXIUM [Suspect]
     Indication: GASTROOESOPHAGEAL REFLUX DISEASE
     Dosage: (40 MG QD ORAL)
     Route: 048
  7. ALLOPURINOL [Suspect]
     Indication: GOUT
     Dosage: (100 MG QD ORAL)
     Route: 048
  8. BABY ASPIRIN (NOT SPECIFIED) [Suspect]
     Indication: DRUG USE FOR UNKNOWN INDICATION
     Dosage: (81 MG QD ORAL)
     Route: 048

REACTIONS (7)
  - DIZZINESS [None]
  - DRUG INTERACTION [None]
  - MALAISE [None]
  - NAUSEA [None]
  - NERVOUSNESS [None]
  - NO THERAPEUTIC RESPONSE [None]
  - TREMOR [None]
